FAERS Safety Report 22748107 (Version 3)
Quarter: 2023Q4

REPORT INFORMATION
  Report Type: Spontaneous
  Country: US (occurrence: None)
  Receive Date: 20230725
  Receipt Date: 20231030
  Transmission Date: 20240109
  Serious: No
  Sender: FDA-Public Use
  Company Number: 2023A167140

PATIENT
  Sex: Female
  Weight: 76.2 kg

DRUGS (1)
  1. CALQUENCE [Suspect]
     Active Substance: ACALABRUTINIB
     Indication: Product use in unapproved indication
     Route: 048
     Dates: start: 202108

REACTIONS (1)
  - Pain in extremity [Unknown]
